FAERS Safety Report 16277419 (Version 2)
Quarter: 2020Q3

REPORT INFORMATION
  Report Type: Report from Study
  Country: US (occurrence: US)
  Receive Date: 20190506
  Receipt Date: 20190513
  Transmission Date: 20201105
  Serious: Yes (Hospitalization)
  Sender: FDA-Public Use
  Company Number: US-PFIZER INC-2019177400

PATIENT
  Age: 53 Year
  Sex: Female
  Weight: 110.4 kg

DRUGS (4)
  1. TALAZOPARIB. [Suspect]
     Active Substance: TALAZOPARIB
     Dosage: UNK, DAILY
     Route: 048
     Dates: start: 20190325, end: 20190421
  2. DECITABINE. [Suspect]
     Active Substance: DECITABINE
     Dosage: UNK
     Route: 042
     Dates: start: 20190222
  3. TALAZOPARIB. [Suspect]
     Active Substance: TALAZOPARIB
     Indication: ACUTE MYELOID LEUKAEMIA
     Dosage: UNK
     Route: 048
     Dates: start: 20190222
  4. DECITABINE. [Suspect]
     Active Substance: DECITABINE
     Dosage: UNK, D1?10
     Route: 042
     Dates: start: 20190325, end: 20190403

REACTIONS (1)
  - Febrile neutropenia [Unknown]

NARRATIVE: CASE EVENT DATE: 20190420
